FAERS Safety Report 19009402 (Version 3)
Quarter: 2021Q2

REPORT INFORMATION
  Report Type: Spontaneous
  Country: CO (occurrence: CO)
  Receive Date: 20210315
  Receipt Date: 20210506
  Transmission Date: 20210717
  Serious: Yes (Other)
  Sender: FDA-Public Use
  Company Number: CO-AMGEN-COLSP2021039093

PATIENT
  Age: 65 Year
  Sex: Female

DRUGS (1)
  1. ENBREL [Suspect]
     Active Substance: ETANERCEPT
     Indication: RHEUMATOID ARTHRITIS
     Dosage: UNK
     Route: 065

REACTIONS (6)
  - Device failure [Unknown]
  - Gastrooesophageal reflux disease [Unknown]
  - Device difficult to use [Unknown]
  - Product dose omission issue [Unknown]
  - Hepatic steatosis [Unknown]
  - Immunosuppression [Unknown]
